FAERS Safety Report 5616089-8 (Version None)
Quarter: 2008Q1

REPORT INFORMATION
  Report Type: 
  Country: None (occurrence: None)
  Receive Date: 20080201
  Receipt Date: 20080128
  Transmission Date: 20080703
  Serious: Yes (Other)
  Sender: FDA-Public Use
  Company Number: 2007336612

PATIENT
  Age: 80 Year
  Sex: Female
  Weight: 60.782 kg

DRUGS (2)
  1. LISTERINE WHITENING PRE-BRUSH RINSE (NO ACTIVE INDREDIENT) [Suspect]
     Indication: DENTAL CARE
     Dosage: 1/2 CAPFUL ONCE, ORAL
     Route: 048
     Dates: start: 20071202, end: 20071202
  2. ALLASPAN (ALVERINE CITRATE, SIMETICONE) [Concomitant]

REACTIONS (6)
  - CHEILITIS [None]
  - GINGIVITIS [None]
  - GLOSSODYNIA [None]
  - LIP SWELLING [None]
  - MEDICATION TAMPERING [None]
  - PHARMACEUTICAL PRODUCT COMPLAINT [None]
